FAERS Safety Report 15478486 (Version 2)
Quarter: 2019Q3

REPORT INFORMATION
  Report Type: Spontaneous
  Country: US (occurrence: US)
  Receive Date: 20181009
  Receipt Date: 20190821
  Transmission Date: 20191004
  Serious: No
  Sender: FDA-Public Use
  Company Number: US-VERTEX PHARMACEUTICALS-2018-007228

PATIENT
  Sex: Male
  Weight: 70 kg

DRUGS (23)
  1. KALYDECO [Suspect]
     Active Substance: IVACAFTOR
     Indication: CYSTIC FIBROSIS
     Dosage: 150 MG, BID
     Route: 048
     Dates: start: 20170908
  2. COZAAR [Concomitant]
     Active Substance: LOSARTAN POTASSIUM
     Dosage: 1.5 DOSAGE FORM, QD
  3. CAYSTON [Concomitant]
     Active Substance: AZTREONAM
     Dosage: 75 MG, TID IN RECURRING CYCLES OF 28 DAYS ON AND 28DAYS OFF
  4. PROMETHAZINE HCL [Concomitant]
     Active Substance: PROMETHAZINE HYDROCHLORIDE
     Indication: VOMITING
  5. PULMOZYME [Concomitant]
     Active Substance: DORNASE ALFA
     Dosage: 2.5 MG, QD
     Route: 055
  6. SYMBICORT [Concomitant]
     Active Substance: BUDESONIDE\FORMOTEROL FUMARATE DIHYDRATE
     Dosage: 1 PUFF QHS
  7. PRILOSEC [Concomitant]
     Active Substance: OMEPRAZOLE MAGNESIUM
     Dosage: 1 DOSAGE FORM, QD
     Route: 048
  8. ZOFRAN [Concomitant]
     Active Substance: ONDANSETRON HYDROCHLORIDE
     Indication: NAUSEA
     Dosage: 1 DOSAGE FORM, PRN
     Route: 048
  9. ZOFRAN [Concomitant]
     Active Substance: ONDANSETRON HYDROCHLORIDE
     Indication: VOMITING
  10. SERTRALINE HCL [Concomitant]
     Active Substance: SERTRALINE HYDROCHLORIDE
     Dosage: 1 DOSAGE FORM, QD
     Route: 048
  11. FLUTICASONE PROPIONATE. [Concomitant]
     Active Substance: FLUTICASONE PROPIONATE
     Dosage: TWO SPRAYS EACH NOSTRIL ,QD
     Route: 045
  12. RANITIDINE HCL [Concomitant]
     Active Substance: RANITIDINE HYDROCHLORIDE
     Dosage: 1 DOSAGE FORM, BID
     Route: 048
  13. AMPHETAMINE [Concomitant]
     Active Substance: AMPHETAMINE
     Dosage: 1 DOSAGE FORM, QD
     Route: 048
  14. PROMETHAZINE HCL [Concomitant]
     Active Substance: PROMETHAZINE HYDROCHLORIDE
     Indication: NAUSEA
     Dosage: 1 DOSAGE FORM, PRN
     Route: 048
  15. SODIUM CHLORIDE. [Concomitant]
     Active Substance: SODIUM CHLORIDE
     Dosage: ONE VIAL BY NEBULIZER, BID
     Route: 055
  16. DOXYCYCLINE HYCLATE [DOXYCYCLINE] [Concomitant]
     Dosage: 1 DOSAGE FORM, BID WITH AFT CONTAINING FOOD
     Route: 048
  17. PROAIR HFA [Concomitant]
     Active Substance: ALBUTEROL SULFATE
     Indication: COUGH
     Dosage: 2-4 PUFFS EVERY 4-6 HPOURS ASNEDED
     Route: 055
  18. CENTRUM MEN [Concomitant]
     Dosage: 1 DOSAGE FORM, QD
     Route: 048
  19. PROAIR HFA [Concomitant]
     Active Substance: ALBUTEROL SULFATE
     Indication: WHEEZING
  20. DEXTROAMPHETAMINE [DEXAMFETAMINE SULFATE] [Concomitant]
     Dosage: 1 DOSAGE FORM, QD
     Route: 048
  21. SINGULAIR [Concomitant]
     Active Substance: MONTELUKAST SODIUM
     Dosage: 1 DOSAGE FORM, QD AT NIGHT
     Route: 048
  22. TOBI [Concomitant]
     Active Substance: TOBRAMYCIN
     Dosage: 300 MG, BID IN RECURRING CYCLES OF 28 DAYS ON AND 28 DAYS OFF
     Route: 055
  23. RHINOCORT ALLERGY [Concomitant]
     Active Substance: BUDESONIDE
     Dosage: 2 DOSAGE FORM, QD
     Route: 045

REACTIONS (2)
  - Vomiting [Not Recovered/Not Resolved]
  - Weight decreased [Not Recovered/Not Resolved]

NARRATIVE: CASE EVENT DATE: 2018
